FAERS Safety Report 10337484 (Version 1)
Quarter: 2014Q3

REPORT INFORMATION
  Report Type: Report from Study
  Country: BR (occurrence: BR)
  Receive Date: 20140724
  Receipt Date: 20140724
  Transmission Date: 20150326
  Serious: Yes (Death)
  Sender: FDA-Public Use
  Company Number: BR-ROCHE-1435971

PATIENT

DRUGS (1)
  1. TRETINOIN. [Suspect]
     Active Substance: TRETINOIN
     Indication: ACUTE PROMYELOCYTIC LEUKAEMIA
     Route: 065

REACTIONS (4)
  - Acute promyelocytic leukaemia differentiation syndrome [Fatal]
  - Infection [Fatal]
  - Thrombosis [Fatal]
  - Haemorrhage [Fatal]
